FAERS Safety Report 5338758-X (Version None)
Quarter: 2007Q2

REPORT INFORMATION
  Report Type: 
  Country: None (occurrence: None)
  Receive Date: 20070530
  Receipt Date: 20070518
  Transmission Date: 20071010
  Serious: No
  Sender: FDA-Public Use
  Company Number: GB-AMGEN-US220258

PATIENT
  Sex: Female
  Weight: 85 kg

DRUGS (11)
  1. ENBREL [Suspect]
     Indication: DRUG USE FOR UNKNOWN INDICATION
     Route: 058
     Dates: start: 20070327, end: 20070406
  2. ACTONEL [Concomitant]
     Indication: OSTEOPOROSIS PROPHYLAXIS
     Route: 048
  3. ESCITALOPRAM OXALATE [Concomitant]
     Indication: DEPRESSION
     Route: 048
  4. DURAGESIC-100 [Concomitant]
     Dosage: 50 MG/HOUR
     Dates: start: 20070115, end: 20070416
  5. CLARITHROMYCIN [Concomitant]
     Indication: LOWER RESPIRATORY TRACT INFECTION
     Route: 048
     Dates: start: 20070213, end: 20070220
  6. CO-CODAMOL [Concomitant]
     Indication: PAIN
     Dosage: 30/500 MG TWICE DAILY
     Route: 048
  7. LIDODERM [Concomitant]
     Indication: PAIN
     Dosage: 5% PATCH FREQUENCY UNKNOWN
     Route: 061
     Dates: start: 20070328
  8. ADCAL D3 [Concomitant]
     Indication: OSTEOPOROSIS PROPHYLAXIS
     Route: 048
  9. NEXIUM [Concomitant]
     Indication: GASTROINTESTINAL DISORDER
     Dosage: 40 MG FREQUENCY UNKNOWN
  10. PREDNISOLONE [Concomitant]
     Indication: RHEUMATOID ARTHRITIS
     Dosage: 3MG FREQUENCY UNKNOWN
  11. DESLORATADINE [Concomitant]
     Indication: HYPERSENSITIVITY
     Dosage: 5 MG FREQUENCY UNKNOWN
     Dates: start: 20070411

REACTIONS (7)
  - DIZZINESS [None]
  - HEADACHE [None]
  - INFLUENZA LIKE ILLNESS [None]
  - MYALGIA [None]
  - PYREXIA [None]
  - THIRST [None]
  - URTICARIA [None]
